FAERS Safety Report 9960400 (Version 2)
Quarter: 2014Q1

REPORT INFORMATION
  Report Type: Report from Study
  Country: US (occurrence: US)
  Receive Date: 20140305
  Receipt Date: 20140305
  Transmission Date: 20141002
  Serious: Yes (Hospitalization)
  Sender: FDA-Public Use
  Company Number: US-ABBVIE-13P-163-1104594-00

PATIENT
  Age: 40 Year
  Sex: Female

DRUGS (2)
  1. HUMIRA [Suspect]
     Indication: CROHN^S DISEASE
     Route: 058
     Dates: start: 200911, end: 20130609
  2. CALCIUM (NON-ABBOTT) [Concomitant]
     Indication: MINERAL SUPPLEMENTATION

REACTIONS (1)
  - Cellulitis [Not Recovered/Not Resolved]
